FAERS Safety Report 7496188-9 (Version None)
Quarter: 2011Q2

REPORT INFORMATION
  Report Type: 
  Country: None (occurrence: None)
  Receive Date: 20110523
  Receipt Date: 20110509
  Transmission Date: 20111010
  Serious: Yes (Other)
  Sender: FDA-Public Use
  Company Number: PHHY2011US39761

PATIENT
  Sex: Male

DRUGS (13)
  1. RECLAST [Suspect]
     Dosage: UNK
     Route: 042
  2. XALATAN [Concomitant]
  3. VITAMINS [Concomitant]
  4. ISORDIL [Concomitant]
  5. ASPIRIN [Concomitant]
     Dosage: 81 MG, UNK
  6. SIMVASTATIN [Concomitant]
  7. TETRACYCLINE [Concomitant]
  8. VANIDENE [Concomitant]
  9. DOXACOR [Concomitant]
  10. GABAPENTIN [Concomitant]
  11. CALCIUM WITH VITAMIN D [Concomitant]
  12. METOPROLOL SUCCINATE [Concomitant]
  13. NEPTAZANE [Concomitant]

REACTIONS (4)
  - VISION BLURRED [None]
  - GLAUCOMA [None]
  - EYE PAIN [None]
  - EYE INFLAMMATION [None]
